FAERS Safety Report 22151601 (Version 2)
Quarter: 2023Q1

REPORT INFORMATION
  Report Type: Spontaneous
  Country: US (occurrence: US)
  Receive Date: 20230329
  Receipt Date: 20230331
  Transmission Date: 20230417
  Serious: No
  Sender: FDA-Public Use
  Company Number: US-SA-SAC20230324001033

PATIENT
  Sex: Female
  Weight: 70.76 kg

DRUGS (22)
  1. DUPIXENT [Suspect]
     Active Substance: DUPILUMAB
     Indication: Neurodermatitis
     Dosage: 600 MG, ONCE
     Route: 058
     Dates: start: 202303, end: 202303
  2. DUPIXENT [Suspect]
     Active Substance: DUPILUMAB
     Dosage: 300 MG, QOW
     Route: 058
  3. HYDROXYZINE HYDROCHLORIDE [Concomitant]
     Active Substance: HYDROXYZINE HYDROCHLORIDE
  4. LEVOCABASTINE HYDROCHLORIDE [Concomitant]
     Active Substance: LEVOCABASTINE HYDROCHLORIDE
  5. NOVOLOG [Concomitant]
     Active Substance: INSULIN ASPART
  6. VITAMIN D3 [Concomitant]
     Active Substance: CHOLECALCIFEROL
  7. FISH OIL [Concomitant]
     Active Substance: FISH OIL
  8. ELDERBERRY EXTRACT [Concomitant]
  9. CALCIUM ASCORBATE [Concomitant]
     Active Substance: CALCIUM ASCORBATE
  10. CALCIUM [Concomitant]
     Active Substance: CALCIUM
  11. ADDERALL [Concomitant]
     Active Substance: AMPHETAMINE ASPARTATE\AMPHETAMINE SULFATE\DEXTROAMPHETAMINE SACCHARATE\DEXTROAMPHETAMINE SULFATE
  12. OXYBUTYNIN CHLORIDE [Concomitant]
     Active Substance: OXYBUTYNIN CHLORIDE
  13. PROAIR DIGIHALER [Concomitant]
     Active Substance: ALBUTEROL SULFATE
  14. ZANAFLEX [Concomitant]
     Active Substance: TIZANIDINE HYDROCHLORIDE
  15. CYMBALTA [Concomitant]
     Active Substance: DULOXETINE HYDROCHLORIDE
  16. ACETAMINOPHEN\HYDROCODONE [Concomitant]
     Active Substance: ACETAMINOPHEN\HYDROCODONE
  17. ASPIRIN [Concomitant]
     Active Substance: ASPIRIN
  18. OMEPRAZOLE [Concomitant]
     Active Substance: OMEPRAZOLE
  19. LISINOPRIL [Concomitant]
     Active Substance: LISINOPRIL
  20. MELOXICAM [Concomitant]
     Active Substance: MELOXICAM
  21. ZYRTEC [Concomitant]
     Active Substance: CETIRIZINE HYDROCHLORIDE
  22. VITAMIN C [Concomitant]
     Active Substance: ASCORBIC ACID

REACTIONS (6)
  - Neurodermatitis [Unknown]
  - Dry skin [Unknown]
  - Lichen planus [Unknown]
  - Skin burning sensation [Unknown]
  - Pruritus [Unknown]
  - Musculoskeletal chest pain [Unknown]
